FAERS Safety Report 4452023-4 (Version None)
Quarter: 2004Q3

REPORT INFORMATION
  Report Type: 
  Country: None (occurrence: None)
  Receive Date: 20040915
  Receipt Date: 20040915
  Transmission Date: 20050211
  Serious: Yes (Life-Threatening, Hospitalization)
  Sender: FDA-Public Use
  Company Number: None

PATIENT
  Age: 61 Year
  Sex: Female
  Weight: 65.4 kg

DRUGS (7)
  1. VINORELBINE TARTRATE [Suspect]
     Indication: LUNG NEOPLASM MALIGNANT
     Dosage: W/I ONE MONTH
  2. GLUCOVANCE [Concomitant]
  3. ACTOS [Concomitant]
  4. MS CONTIN [Concomitant]
  5. OXYCODONE HCL [Concomitant]
  6. SENOKOT [Concomitant]
  7. AMARYL [Concomitant]

REACTIONS (3)
  - BACK PAIN [None]
  - BLOOD SODIUM DECREASED [None]
  - NEOPLASM [None]
